FAERS Safety Report 9300809 (Version 1)
Quarter: 2013Q2

REPORT INFORMATION
  Report Type: Spontaneous
  Country: US (occurrence: US)
  Receive Date: 20130521
  Receipt Date: 20130521
  Transmission Date: 20140414
  Serious: Yes (Other)
  Sender: FDA-Public Use
  Company Number: CHPA2013US008270

PATIENT
  Age: 63 Year
  Sex: Female

DRUGS (17)
  1. EXCEDRIN EXTRA STRENGTH [Suspect]
     Indication: MIGRAINE
     Dosage: 2 DF, PRN
     Route: 048
     Dates: start: 1973
  2. EXCEDRIN EXTRA STRENGTH [Suspect]
     Indication: HEADACHE
  3. EXCEDRIN EXTRA STRENGTH [Suspect]
     Indication: MUSCLE SPASMS
  4. EXCEDRIN EXTRA STRENGTH [Suspect]
     Indication: PAIN
  5. EXCEDRIN MIGRAINE [Suspect]
     Indication: HEADACHE
     Dosage: 2 DF, PRN
     Route: 048
  6. EXCEDRIN MIGRAINE [Suspect]
     Indication: MUSCLE SPASMS
  7. EXCEDRIN MIGRAINE [Suspect]
     Indication: PAIN
  8. EXCEDRIN MIGRAINE [Suspect]
     Indication: MIGRAINE
  9. GAS X PREVENTION [Concomitant]
     Indication: FLATULENCE
     Dosage: 1 OR 2 AT A TIME
     Route: 048
  10. CENTRUM [Concomitant]
     Indication: SUPPLEMENTATION THERAPY
     Dosage: 2 DF, QD
     Route: 048
  11. CALCIUM [Concomitant]
     Indication: SUPPLEMENTATION THERAPY
     Dosage: 3780 MG, QD
     Route: 048
  12. VITAMIN A [Concomitant]
     Indication: VITAMIN SUPPLEMENTATION
     Dosage: 50000 IU, QD
     Route: 048
  13. CYMBALTA [Concomitant]
     Indication: DIABETIC NEUROPATHY
     Dosage: UNK, UNK
  14. HMG COA REDUCTASE INHIBITORS [Concomitant]
     Indication: BLOOD CHOLESTEROL INCREASED
     Dosage: UNK, UNK
     Dates: end: 2004
  15. METFORMIN [Concomitant]
     Indication: DIABETES MELLITUS
     Dosage: UNK, QD
     Route: 048
     Dates: start: 1984, end: 2004
  16. BETA BLOCKING AGENTS [Concomitant]
     Indication: HYPERTENSION
     Dosage: UNK, UNK
     Route: 048
     Dates: end: 2004
  17. INSULIN [Concomitant]
     Indication: DIABETES MELLITUS
     Dosage: UNK, UNK
     Dates: end: 2004

REACTIONS (9)
  - Blood triglycerides increased [Recovered/Resolved]
  - Blood glucose increased [Recovered/Resolved]
  - Blood cholesterol increased [Recovered/Resolved]
  - Blood iron decreased [Recovered/Resolved]
  - Blood copper decreased [Recovering/Resolving]
  - Blood zinc decreased [Recovering/Resolving]
  - Vitamin D decreased [Not Recovered/Not Resolved]
  - Weight decreased [Not Recovered/Not Resolved]
  - Off label use [Unknown]
